FAERS Safety Report 6016184-8 (Version None)
Quarter: 2008Q4

REPORT INFORMATION
  Report Type: 
  Country: None (occurrence: None)
  Receive Date: 20081216
  Receipt Date: 20080401
  Transmission Date: 20090506
  Serious: Yes (Hospitalization)
  Sender: FDA-Public Use
  Company Number: US-WYE-H03389608

PATIENT
  Age: 51 Year
  Sex: Male
  Weight: 90.8 kg

DRUGS (3)
  1. EFFEXOR XR [Suspect]
     Indication: DEPRESSION
     Dosage: TITRATED UP TO 225 MG DAILY, ORAL
     Route: 048
     Dates: start: 20050101
  2. NORVASC [Concomitant]
  3. PRILOSEC [Concomitant]

REACTIONS (7)
  - BURSITIS [None]
  - DEEP VEIN THROMBOSIS [None]
  - HYPERHIDROSIS [None]
  - INSOMNIA [None]
  - PLANTAR FASCIITIS [None]
  - SOMNOLENCE [None]
  - WEIGHT INCREASED [None]
